FAERS Safety Report 24680920 (Version 3)
Quarter: 2024Q4

REPORT INFORMATION
  Report Type: Report from Study
  Country: KR (occurrence: KR)
  Receive Date: 20241129
  Receipt Date: 20241218
  Transmission Date: 20250115
  Serious: Yes (Other)
  Sender: BAUSCH AND LOMB
  Company Number: KR-BAUSCHBL-2024BNL037946

PATIENT
  Age: 73 Year
  Sex: Male
  Weight: 76.8 kg

DRUGS (3)
  1. VYZULTA [Suspect]
     Active Substance: LATANOPROSTENE BUNOD
     Indication: Open angle glaucoma
     Dosage: BOTH EYES
     Route: 047
     Dates: start: 20230824
  2. COSOPT [Concomitant]
     Active Substance: DORZOLAMIDE HYDROCHLORIDE\TIMOLOL MALEATE
     Indication: Open angle glaucoma
     Dosage: OU (OCULUCUTERQUE) OPHTHALMIC SOLUTION
     Route: 047
     Dates: start: 20171013
  3. BRIDIN T [Concomitant]
     Indication: Open angle glaucoma
     Dosage: OD(OCULUCDEXTER) RIGHT EYE (0.3 ML)
     Route: 047
     Dates: start: 20231002

REACTIONS (1)
  - Anterior chamber inflammation [Recovering/Resolving]

NARRATIVE: CASE EVENT DATE: 20231026
